FAERS Safety Report 8433032-7 (Version None)
Quarter: 2012Q2

REPORT INFORMATION
  Report Type: 
  Country: None (occurrence: None)
  Receive Date: 20120613
  Receipt Date: 20120606
  Transmission Date: 20120825
  Serious: Yes (Other)
  Sender: FDA-Public Use
  Company Number: GR-ROCHE-1075938

PATIENT
  Age: 70 Year
  Sex: Female

DRUGS (3)
  1. NOLVADEX [Concomitant]
     Indication: NEOPLASM MALIGNANT
     Route: 065
  2. BONIVA [Suspect]
     Route: 065
     Dates: start: 20120531
  3. BONIVA [Suspect]
     Indication: OSTEOPOROSIS
     Route: 065

REACTIONS (2)
  - TOOTH FRACTURE [None]
  - DENTAL CARIES [None]
